FAERS Safety Report 12411995 (Version 2)
Quarter: 2019Q3

REPORT INFORMATION
  Report Type: Spontaneous
  Country: CZ (occurrence: CZ)
  Receive Date: 20160527
  Receipt Date: 20190814
  Transmission Date: 20191004
  Serious: Yes (Other)
  Sender: FDA-Public Use
  Company Number: CZ-SUN PHARMACEUTICAL INDUSTRIES LTD-2009RR-21671

PATIENT
  Age: 54 Year
  Sex: Female

DRUGS (3)
  1. ZYPREXA [Suspect]
     Active Substance: OLANZAPINE
     Indication: DELUSIONAL DISORDER, UNSPECIFIED TYPE
     Dosage: 20 MG, QD
     Route: 065
  2. CITALOPRAM [Concomitant]
     Active Substance: CITALOPRAM HYDROBROMIDE
     Indication: DELUSIONAL DISORDER, UNSPECIFIED TYPE
     Dosage: 40 MG, UNK
     Route: 065
  3. OXAZEPAM. [Suspect]
     Active Substance: OXAZEPAM
     Indication: DELUSIONAL DISORDER, UNSPECIFIED TYPE
     Dosage: 15 MG, UNK
     Route: 065

REACTIONS (2)
  - Sedation [Unknown]
  - Deep vein thrombosis [Recovered/Resolved]
